FAERS Safety Report 22977153 (Version 2)
Quarter: 2023Q4

REPORT INFORMATION
  Report Type: Spontaneous
  Country: MX (occurrence: MX)
  Receive Date: 20230925
  Receipt Date: 20231019
  Transmission Date: 20240110
  Serious: Yes (Other)
  Sender: FDA-Public Use
  Company Number: MX-BAYER-2023A134557

PATIENT
  Age: 65 Year
  Sex: Female

DRUGS (1)
  1. FINERENONE [Suspect]
     Active Substance: FINERENONE
     Indication: Chronic kidney disease
     Dosage: 10 MG, QD
     Dates: start: 20230721, end: 20230730

REACTIONS (1)
  - Urticaria [Recovered/Resolved]
